FAERS Safety Report 16671375 (Version 3)
Quarter: 2019Q4

REPORT INFORMATION
  Report Type: Spontaneous
  Country: US (occurrence: US)
  Receive Date: 20190806
  Receipt Date: 20191001
  Transmission Date: 20200122
  Serious: Yes (Hospitalization)
  Sender: FDA-Public Use
  Company Number: US-GLENMARK PHARMACEUTICALS-2019GMK042408

PATIENT

DRUGS (7)
  1. ATORVASTATIN [Concomitant]
     Active Substance: ATORVASTATIN
     Indication: ISCHAEMIC HEART DISEASE PROPHYLAXIS
     Dosage: UNK
     Route: 065
  2. NITROGLYCERIN SUBLINGUAL TABLETS USP 0.4 MG [Suspect]
     Active Substance: NITROGLYCERIN
     Dosage: UNK, PRN
     Route: 060
  3. BABY ASPIRIN [Concomitant]
     Active Substance: ASPIRIN
     Indication: PRODUCT USED FOR UNKNOWN INDICATION
     Dosage: UNK
     Route: 065
  4. NITROGLYCERIN SUBLINGUAL TABLETS USP 0.4 MG [Suspect]
     Active Substance: NITROGLYCERIN
     Dosage: UNK, PRN (FOURTH TABLET RECEIVED IN THE HOSPITAL)
     Route: 060
     Dates: start: 20190727, end: 20190727
  5. NITROGLYCERIN SUBLINGUAL TABLETS USP 0.4 MG [Suspect]
     Active Substance: NITROGLYCERIN
     Indication: ANGINA PECTORIS
     Dosage: UNK, PRN (AT QUARTER TO 3 PM HE TOOK FIRST DOSE)
     Route: 060
     Dates: start: 20190727, end: 20190727
  6. NITROGLYCERIN SUBLINGUAL TABLETS USP 0.4 MG [Suspect]
     Active Substance: NITROGLYCERIN
     Dosage: UNK, PRN (ABOUT 3 O^CLOCK HE TOOK SECOND TABLET)
     Route: 060
     Dates: start: 20190727, end: 20190727
  7. NITROGLYCERIN SUBLINGUAL TABLETS USP 0.4 MG [Suspect]
     Active Substance: NITROGLYCERIN
     Dosage: UNK, PRN (THIRD TABLET RECEIVED IN THE HOSPITAL)
     Route: 060
     Dates: start: 20190727, end: 20190727

REACTIONS (3)
  - Drug ineffective [Unknown]
  - Angina pectoris [Recovered/Resolved]
  - Dizziness [Recovered/Resolved]

NARRATIVE: CASE EVENT DATE: 20190727
